FAERS Safety Report 8779601 (Version 1)
Quarter: 2012Q4

REPORT INFORMATION
  Report Type: 
  Country: US (occurrence: US)
  Receive Date: 20120911
  Receipt Date: 20120911
  Transmission Date: 20130627
  Serious: Yes (Hospitalization)
  Sender: FDA-Public Use
  Company Number: US-BAYER-2012-093599

PATIENT
  Age: 35 Year
  Sex: Female
  Weight: 69.57 kg

DRUGS (11)
  1. YASMIN [Suspect]
  2. YAZ [Suspect]
  3. FLONASE [Concomitant]
     Dosage: UNK
     Route: 045
     Dates: start: 20060130, end: 20080411
  4. ALAVERT [Concomitant]
     Dosage: UNK
     Route: 048
     Dates: start: 20060411, end: 20080411
  5. CRANTEX LA [Concomitant]
     Dosage: UNK UNK, BID
     Route: 048
     Dates: start: 20070803, end: 20080411
  6. ASPIRIN [Concomitant]
     Dosage: UNK
     Route: 048
     Dates: start: 20080403
  7. BIAXIN XL [Concomitant]
     Indication: SINUSITIS
     Dosage: 500 mg, BID
     Route: 048
     Dates: start: 20080403
  8. MEDROL [Concomitant]
     Indication: OTITIS MEDIA
     Dosage: For one week
     Route: 048
     Dates: start: 20080403
  9. NASAL SALINE [Concomitant]
     Dosage: UNK
     Route: 045
     Dates: start: 20080411
  10. ALLERGY INJECTIONS [Concomitant]
  11. ACETAMINOPHEN [Concomitant]

REACTIONS (1)
  - Deep vein thrombosis [Recovered/Resolved]
